FAERS Safety Report 14378007 (Version 1)
Quarter: 2018Q1

REPORT INFORMATION
  Report Type: Report from Study
  Country: PE (occurrence: PE)
  Receive Date: 20180111
  Receipt Date: 20180111
  Transmission Date: 20180509
  Serious: Yes (Death, Hospitalization)
  Sender: FDA-Public Use
  Company Number: PE-SA-2018SA004222

PATIENT
  Age: 66 Year
  Sex: Male

DRUGS (2)
  1. COAPROVEL [Suspect]
     Active Substance: HYDROCHLOROTHIAZIDE\IRBESARTAN
     Indication: HYPERTENSION
     Dosage: 300MG/ 25MG
     Route: 048
     Dates: start: 2014
  2. NORVASC [Concomitant]
     Active Substance: AMLODIPINE BESYLATE
     Indication: HYPERTENSION
     Route: 048
     Dates: start: 2014

REACTIONS (3)
  - Feeling abnormal [Fatal]
  - Cardio-respiratory arrest [Fatal]
  - Renal failure [Fatal]

NARRATIVE: CASE EVENT DATE: 2015
